FAERS Safety Report 16758634 (Version 1)
Quarter: 2019Q3

REPORT INFORMATION
  Report Type: Report from Study
  Country: ES (occurrence: ES)
  Receive Date: 20190830
  Receipt Date: 20190830
  Transmission Date: 20191005
  Serious: Yes (Hospitalization)
  Sender: FDA-Public Use
  Company Number: ES-TEVA-2019-ES-1098468

PATIENT
  Age: 72 Year
  Sex: Female

DRUGS (6)
  1. TACROLIMUS (2694A) [Interacting]
     Active Substance: TACROLIMUS
     Indication: PROPHYLAXIS AGAINST TRANSPLANT REJECTION
     Dosage: 2 MILLIGRAM PER DAY
     Route: 048
     Dates: start: 20130717, end: 20180627
  2. MICOFENOLATO DE MOFETILO (7330LM) [Interacting]
     Active Substance: MYCOPHENOLATE MOFETIL
     Indication: PROPHYLAXIS AGAINST TRANSPLANT REJECTION
     Dosage: 500 MILLIGRAM PER DAY
     Route: 048
     Dates: start: 20090707, end: 20180627
  3. ACENOCUMAROL (220A) [Concomitant]
     Active Substance: ACENOCOUMAROL
     Indication: ATRIAL FIBRILLATION
     Route: 048
     Dates: start: 20130805, end: 20180627
  4. BISOPROLOL (2328A) [Concomitant]
     Active Substance: BISOPROLOL
     Indication: ATRIAL FIBRILLATION
     Dosage: 2.5 MILLIGRAM PER DAY
     Route: 048
     Dates: start: 20140912, end: 20180627
  5. AMLODIPINO (2503A) [Concomitant]
     Active Substance: AMLODIPINE BESYLATE
     Indication: HYPERTENSION
     Dosage: 5 MILLIGRAM PER DAY
     Route: 048
     Dates: start: 20091102, end: 20180627
  6. PREDNISONA (886A) [Suspect]
     Active Substance: PREDNISONE
     Indication: PROPHYLAXIS
     Dosage: 5 MILLIGRAM PER DAY
     Route: 048
     Dates: start: 20110211

REACTIONS (2)
  - Drug interaction [Unknown]
  - Cytomegalovirus infection [Recovered/Resolved]

NARRATIVE: CASE EVENT DATE: 20180627
